FAERS Safety Report 5012980-4 (Version None)
Quarter: 2006Q2

REPORT INFORMATION
  Report Type: 
  Country: None (occurrence: None)
  Receive Date: 20060524
  Receipt Date: 20060314
  Transmission Date: 20061013
  Serious: Yes (Death)
  Sender: FDA-Public Use
  Company Number: T200600280

PATIENT
  Age: 34 Year

DRUGS (1)
  1. HYDROCODONE BITARTRATE/APAP (HYDRPOCODONE BITARTRATE, ACETAMINOPHEN)TA [Suspect]
     Dosage: ORAL
     Route: 048

REACTIONS (1)
  - INTENTIONAL DRUG MISUSE [None]
